FAERS Safety Report 7634941-9 (Version None)
Quarter: 2011Q3

REPORT INFORMATION
  Report Type: 
  Country: None (occurrence: None)
  Receive Date: 20110726
  Receipt Date: 20110715
  Transmission Date: 20111222
  Serious: Yes (Death, Other)
  Sender: FDA-Public Use
  Company Number: US-BAYER-201034714NA

PATIENT
  Age: 41 Year
  Sex: Female
  Weight: 153.29 kg

DRUGS (12)
  1. DEPAKOTE [Concomitant]
     Indication: MENTAL DISORDER
  2. YASMIN [Suspect]
     Indication: UTERINE HAEMORRHAGE
     Dosage: UNK
     Dates: start: 20080801, end: 20080901
  3. EFFEXOR [Concomitant]
     Indication: DEPRESSION
  4. ZYPREXA [Concomitant]
  5. LAMICTAL [Concomitant]
     Indication: AFFECTIVE DISORDER
  6. INVEGA [Concomitant]
  7. TOPAMAX [Concomitant]
  8. BENZTROPINE MESYLATE [Concomitant]
  9. ABILIFY [Concomitant]
     Dosage: 20 MG, QD
  10. CELEBREX [Concomitant]
  11. LORAZEPAM [Concomitant]
  12. PROPRANOLOL [Concomitant]
     Indication: TREMOR

REACTIONS (7)
  - INFARCTION [None]
  - TRANSVERSE SINUS THROMBOSIS [None]
  - SUBARACHNOID HAEMORRHAGE [None]
  - PULMONARY EMBOLISM [None]
  - CEREBROVASCULAR ACCIDENT [None]
  - SUPERIOR SAGITTAL SINUS THROMBOSIS [None]
  - CONVULSION [None]
